FAERS Safety Report 4491069-7 (Version None)
Quarter: 2004Q4

REPORT INFORMATION
  Report Type: 
  Country: None (occurrence: None)
  Receive Date: 20041027
  Receipt Date: 20041011
  Transmission Date: 20050328
  Serious: Yes (Other)
  Sender: FDA-Public Use
  Company Number: S04-UKI-06842-01

PATIENT
  Age: 40 Year

DRUGS (2)
  1. CIPRALEX (ESCITALOPRAM) [Suspect]
     Dosage: 10 MG QD PO
     Route: 048
     Dates: start: 20040903, end: 20040920
  2. CARBAMAZEPINE [Concomitant]

REACTIONS (2)
  - GRAND MAL CONVULSION [None]
  - STATUS EPILEPTICUS [None]
